FAERS Safety Report 18296945 (Version 2)
Quarter: 2020Q4

REPORT INFORMATION
  Report Type: Other
  Country: CN (occurrence: CN)
  Receive Date: 20200922
  Receipt Date: 20201123
  Transmission Date: 20210113
  Serious: Yes (Hospitalization)
  Sender: FDA-Public Use
  Company Number: CN-ROCHE-2666946

PATIENT
  Age: 76 Year
  Sex: Male
  Weight: 33 kg

DRUGS (2)
  1. AVASTIN [Suspect]
     Active Substance: BEVACIZUMAB
     Route: 041
  2. AVASTIN [Suspect]
     Active Substance: BEVACIZUMAB
     Indication: COLON CANCER
     Route: 041
     Dates: start: 20170705, end: 20200805

REACTIONS (6)
  - Intestinal obstruction [Recovering/Resolving]
  - Fatigue [Unknown]
  - Cystic lung disease [Recovering/Resolving]
  - Heat stroke [Unknown]
  - Hypertension [Unknown]
  - Asthenia [Unknown]

NARRATIVE: CASE EVENT DATE: 20200826
